FAERS Safety Report 6154053-3 (Version None)
Quarter: 2009Q2

REPORT INFORMATION
  Report Type: 
  Country: None (occurrence: None)
  Receive Date: 20090414
  Receipt Date: 20090409
  Transmission Date: 20091009
  Serious: Yes (Hospitalization)
  Sender: FDA-Public Use
  Company Number: JP-BAYER-200910913BYL

PATIENT
  Age: 69 Year
  Sex: Male
  Weight: 55 kg

DRUGS (14)
  1. NEXAVAR [Suspect]
     Indication: RENAL CELL CARCINOMA STAGE IV
     Dosage: TOTAL DAILY DOSE: 800 MG  UNIT DOSE: 200 MG
     Route: 048
     Dates: start: 20090223, end: 20090323
  2. NEXAVAR [Suspect]
     Dosage: TOTAL DAILY DOSE: 400 MG  UNIT DOSE: 200 MG
     Route: 048
     Dates: start: 20090324, end: 20090324
  3. CIMETIDINE HCL [Suspect]
     Indication: DRUG USE FOR UNKNOWN INDICATION
     Route: 065
  4. MOBIC [Concomitant]
     Route: 048
     Dates: start: 20090223, end: 20090323
  5. MICARDIS [Concomitant]
     Route: 048
     Dates: start: 20090223
  6. OXINORM [Concomitant]
     Route: 048
     Dates: start: 20090305, end: 20090309
  7. KALIMATE [Concomitant]
     Route: 048
     Dates: start: 20090319
  8. KALIMATE [Concomitant]
     Route: 048
     Dates: start: 20090305, end: 20090310
  9. KALIMATE [Concomitant]
     Route: 048
     Dates: start: 20090311, end: 20090316
  10. OXYCONTIN [Concomitant]
     Route: 048
     Dates: start: 20090310, end: 20090316
  11. OXYCONTIN [Concomitant]
     Route: 048
     Dates: start: 20090317
  12. TAGAMET [Concomitant]
     Route: 048
     Dates: start: 20090311, end: 20090323
  13. MAGMITT [Concomitant]
     Route: 048
     Dates: start: 20090311
  14. HANGE-KOBOKU-TO [Concomitant]
     Route: 048
     Dates: start: 20090327, end: 20090331

REACTIONS (2)
  - HEPATIC FUNCTION ABNORMAL [None]
  - HYPERKALAEMIA [None]
